FAERS Safety Report 19283267 (Version 1)
Quarter: 2021Q2

REPORT INFORMATION
  Report Type: Spontaneous
  Country: US (occurrence: US)
  Receive Date: 20210520
  Receipt Date: 20210520
  Transmission Date: 20210717
  Serious: No
  Sender: FDA-Public Use
  Company Number: None

PATIENT
  Sex: Male

DRUGS (1)
  1. TALTZ [Suspect]
     Active Substance: IXEKIZUMAB
     Indication: PSORIASIS
     Dosage: ?          OTHER DOSE:1 PEN ;OTHER FREQUENCY:EVERY 4 WEEKS ;?
     Route: 058
     Dates: start: 2020

REACTIONS (1)
  - Therapy non-responder [None]
